FAERS Safety Report 7402444-2 (Version None)
Quarter: 2011Q2

REPORT INFORMATION
  Report Type: 
  Country: None (occurrence: None)
  Receive Date: 20110408
  Receipt Date: 20110325
  Transmission Date: 20111010
  Serious: Yes (Hospitalization)
  Sender: FDA-Public Use
  Company Number: US-CELGENEUS-163-21880-11021348

PATIENT
  Sex: Female

DRUGS (22)
  1. MAGNESIUM OXIDE [Concomitant]
     Dosage: 500 MILLIGRAM
     Route: 048
  2. REVLIMID [Suspect]
     Dosage: 10 MILLIGRAM
     Route: 048
     Dates: start: 20110118
  3. ULTRAM [Concomitant]
     Indication: PAIN
     Dosage: 25 MILLIGRAM
     Route: 065
  4. HEPARIN LOCK-FLUSH [Concomitant]
     Dosage: 100 IU (INTERNATIONAL UNIT)
     Route: 065
  5. VALTREX [Concomitant]
     Indication: VIRAL INFECTION
     Dosage: 500 MILLIGRAM
     Route: 048
  6. AMIODARONE [Concomitant]
     Dosage: 200 MILLIGRAM
     Route: 048
     Dates: start: 20110307
  7. ZOFRAN [Concomitant]
     Indication: VOMITING
  8. AMIODARONE [Concomitant]
     Indication: ATRIAL FIBRILLATION
     Dosage: 200 MILLIGRAM
     Route: 048
     Dates: start: 20110226, end: 20110306
  9. CODEINE GUAIFENESIN [Concomitant]
     Indication: COUGH
     Dosage: 10MG/100MG
     Route: 048
  10. VALIUM [Concomitant]
     Indication: ANXIETY
     Dosage: 2 MILLIGRAM
     Route: 048
  11. PROTONIX [Concomitant]
     Dosage: 40 MILLIGRAM
     Route: 048
  12. VFEND [Concomitant]
     Indication: FUNGAL INFECTION
     Dosage: 300 MILLIGRAM
     Route: 048
  13. REVLIMID [Suspect]
     Dosage: 10 MILLIGRAM
     Route: 048
     Dates: start: 20100101
  14. ESTRACE [Concomitant]
     Dosage: 1 APPLICATION
     Route: 067
  15. LEVAQUIN [Concomitant]
     Indication: ANTI-INFECTIVE THERAPY
     Dosage: 250 MILLIGRAM
     Route: 048
  16. LOPRESSOR [Concomitant]
     Indication: ATRIAL FIBRILLATION
     Dosage: 25 MILLIGRAM
     Route: 048
  17. SENSIPAR [Concomitant]
     Dosage: 30 MILLIGRAM
     Route: 048
  18. SPIRIVA [Concomitant]
     Dosage: 18 MICROGRAM
     Route: 048
  19. VALTREX [Concomitant]
     Indication: PROPHYLAXIS
  20. ZYVOX [Concomitant]
     Dosage: 600 MILLIGRAM
     Route: 048
  21. SENOKOT [Concomitant]
     Indication: CONSTIPATION
     Dosage: 1 TABLET
     Route: 048
  22. ZOFRAN [Concomitant]
     Indication: NAUSEA
     Dosage: 8 MILLIGRAM
     Route: 048

REACTIONS (1)
  - SOMNOLENCE [None]
